FAERS Safety Report 25596885 (Version 1)
Quarter: 2025Q3

REPORT INFORMATION
  Report Type: Spontaneous
  Country: US (occurrence: None)
  Receive Date: 20250722
  Receipt Date: 20250722
  Transmission Date: 20251021
  Serious: Yes (Disabling)
  Sender: FDA-CTU
  Company Number: None

PATIENT
  Age: 46 Year
  Sex: Female
  Weight: 81.9 kg

DRUGS (1)
  1. PLAQUENIL [Suspect]
     Active Substance: HYDROXYCHLOROQUINE SULFATE

REACTIONS (6)
  - Coccydynia [None]
  - Movement disorder [None]
  - Gait disturbance [None]
  - Dysstasia [None]
  - Fibrin D dimer increased [None]
  - Arthritis [None]

NARRATIVE: CASE EVENT DATE: 20250707
